FAERS Safety Report 15712198 (Version 3)
Quarter: 2019Q2

REPORT INFORMATION
  Report Type: Spontaneous
  Country: US (occurrence: US)
  Receive Date: 20181212
  Receipt Date: 20190523
  Transmission Date: 20190711
  Serious: No
  Sender: FDA-Public Use
  Company Number: US-PFIZER INC-2018393407

PATIENT
  Age: 79 Year
  Sex: Male

DRUGS (1)
  1. XELJANZ XR [Suspect]
     Active Substance: TOFACITINIB CITRATE
     Dosage: 11 MG, UNK
     Dates: start: 20180824

REACTIONS (5)
  - Sensitivity to weather change [Unknown]
  - Product dose omission [Unknown]
  - Arthralgia [Not Recovered/Not Resolved]
  - Localised infection [Unknown]
  - Inflammation [Unknown]
